FAERS Safety Report 20127641 (Version 1)
Quarter: 2021Q4

REPORT INFORMATION
  Report Type: Spontaneous
  Country: KZ (occurrence: KZ)
  Receive Date: 20211129
  Receipt Date: 20211129
  Transmission Date: 20220303
  Serious: Yes (Other)
  Sender: FDA-Public Use
  Company Number: KZ-ALFASIGMA-2020.11167

PATIENT
  Age: 45 Year
  Sex: Male

DRUGS (2)
  1. RIFAXIMIN [Suspect]
     Active Substance: RIFAXIMIN
     Indication: Nonalcoholic fatty liver disease
     Route: 048
     Dates: start: 2020, end: 2020
  2. RIFAXIMIN [Suspect]
     Active Substance: RIFAXIMIN
     Indication: Pancreatitis chronic

REACTIONS (2)
  - Abdominal pain [Unknown]
  - Product use in unapproved indication [Recovered/Resolved]

NARRATIVE: CASE EVENT DATE: 20200101
